FAERS Safety Report 7009221-5 (Version None)
Quarter: 2010Q3

REPORT INFORMATION
  Report Type: 
  Country: None (occurrence: None)
  Receive Date: 20100921
  Receipt Date: 20100913
  Transmission Date: 20110219
  Serious: Yes (Death, Other)
  Sender: FDA-Public Use
  Company Number: 2010US003756

PATIENT
  Sex: Female

DRUGS (2)
  1. PROGRAF [Suspect]
     Indication: PROPHYLAXIS AGAINST GRAFT VERSUS HOST DISEASE
     Dosage: IV NOS, ORAL
     Route: 042
  2. METHOTREXATE [Concomitant]

REACTIONS (5)
  - BACTERIAL SEPSIS [None]
  - CANDIDIASIS [None]
  - OFF LABEL USE [None]
  - RENAL TUBULAR NECROSIS [None]
  - SERUM SICKNESS [None]
